FAERS Safety Report 17510605 (Version 1)
Quarter: 2020Q1

REPORT INFORMATION
  Report Type: Spontaneous
  Country: US (occurrence: US)
  Receive Date: 20200306
  Receipt Date: 20200306
  Transmission Date: 20200409
  Serious: No
  Sender: FDA-Public Use
  Company Number: US-009507513-2003USA001904

PATIENT
  Age: 66 Year
  Sex: Female

DRUGS (2)
  1. KEYTRUDA [Suspect]
     Active Substance: PEMBROLIZUMAB
     Indication: ENDOMETRIAL NEOPLASM
     Dosage: UNK
     Route: 041
  2. LENVATINIB MESYLATE [Suspect]
     Active Substance: LENVATINIB MESYLATE
     Indication: ENDOMETRIAL CANCER
     Dosage: 200 MG DAILY
     Route: 048
     Dates: start: 20200203

REACTIONS (10)
  - Thyroid hormones increased [Not Recovered/Not Resolved]
  - Dysphonia [Recovering/Resolving]
  - Hunger [Recovering/Resolving]
  - Diarrhoea [Not Recovered/Not Resolved]
  - Blood pressure abnormal [Recovering/Resolving]
  - Skin ulcer [Not Recovered/Not Resolved]
  - Nephrostomy [Not Recovered/Not Resolved]
  - Weight increased [Recovering/Resolving]
  - Adverse event [Recovering/Resolving]
  - Fatigue [Recovering/Resolving]

NARRATIVE: CASE EVENT DATE: 20200219
